FAERS Safety Report 8991329 (Version 1)
Quarter: 2012Q4

REPORT INFORMATION
  Report Type: 
  Country: US (occurrence: US)
  Receive Date: 20121230
  Receipt Date: 20121230
  Transmission Date: 20130627
  Serious: Yes (Hospitalization)
  Sender: FDA-Public Use
  Company Number: US-ALEXION-A201202471

PATIENT
  Sex: Female

DRUGS (1)
  1. SOLIRIS 300MG [Suspect]
     Dosage: UNK

REACTIONS (7)
  - Pyrexia [Unknown]
  - Headache [Unknown]
  - Paraesthesia [Unknown]
  - Nausea [Unknown]
  - Vomiting [Unknown]
  - Haemoglobin decreased [Unknown]
  - Haemolysis [Unknown]
